FAERS Safety Report 12420741 (Version 6)
Quarter: 2016Q4

REPORT INFORMATION
  Report Type: Spontaneous
  Country: IN (occurrence: IN)
  Receive Date: 20160531
  Receipt Date: 20161229
  Transmission Date: 20170207
  Serious: Yes (Life-Threatening, Other)
  Sender: FDA-Public Use
  Company Number: IN-PFIZER INC-2016279953

PATIENT
  Age: 10 Month
  Weight: 4 kg

DRUGS (8)
  1. FLUCONAZOLE. [Suspect]
     Active Substance: FLUCONAZOLE
     Indication: CANDIDA INFECTION
     Dosage: 10 MG/KG, DAILY, SINGLE (OVER 1 H)
     Route: 042
  2. FLUCONAZOLE. [Interacting]
     Active Substance: FLUCONAZOLE
     Indication: CANDIDA INFECTION
     Dosage: UNK
     Route: 048
  3. AMIODARONE [Interacting]
     Active Substance: AMIODARONE
     Indication: TACHYARRHYTHMIA
     Dosage: UNK
     Route: 048
  4. MILRINONE [Concomitant]
     Active Substance: MILRINONE
     Indication: SINUS BRADYCARDIA
     Dosage: 0.3 MCG/KG/MIN
  5. AMIODARONE HCL [Interacting]
     Active Substance: AMIODARONE HYDROCHLORIDE
     Indication: TACHYARRHYTHMIA
     Dosage: 5 MG/KG, UNK (ONCE)
     Route: 040
  6. AMIODARONE [Interacting]
     Active Substance: AMIODARONE
     Indication: RIGHT VENTRICULAR DYSFUNCTION
  7. AMIODARONE HCL [Interacting]
     Active Substance: AMIODARONE HYDROCHLORIDE
     Indication: ARRHYTHMIA
     Dosage: 10 MG/KG, DAILY
  8. NOREPINEPHRINE [Concomitant]
     Active Substance: NOREPINEPHRINE\NOREPINEPHRINE BITARTRATE
     Indication: SINUS BRADYCARDIA
     Dosage: 0.05 MCG/KG/MIN

REACTIONS (6)
  - Bradycardia [Recovered/Resolved]
  - Cardiac arrest [Recovered/Resolved]
  - Drug interaction [Recovered/Resolved]
  - Product use issue [Unknown]
  - Atrioventricular block [Recovered/Resolved]
  - Atrioventricular dissociation [Recovered/Resolved]
